FAERS Safety Report 24251158 (Version 1)
Quarter: 2024Q3

REPORT INFORMATION
  Report Type: Report from Study
  Country: FR (occurrence: FR)
  Receive Date: 20240826
  Receipt Date: 20240826
  Transmission Date: 20241016
  Serious: Yes (Other)
  Sender: DAIICHI
  Company Number: FR-DSJP-DSE-2024-123522

PATIENT
  Sex: Female

DRUGS (7)
  1. ENHERTU [Suspect]
     Active Substance: FAM-TRASTUZUMAB DERUXTECAN-NXKI
     Indication: HER2 low breast cancer
     Dosage: UNK, CYCLIC
     Route: 042
     Dates: start: 20221230, end: 20240125
  2. ENHERTU [Suspect]
     Active Substance: FAM-TRASTUZUMAB DERUXTECAN-NXKI
     Indication: Breast cancer metastatic
     Dosage: UNK, CYCLIC
     Route: 042
     Dates: start: 20240215, end: 20240215
  3. ENHERTU [Suspect]
     Active Substance: FAM-TRASTUZUMAB DERUXTECAN-NXKI
     Dosage: 3.2 MG/KG, CYCLIC
     Route: 042
     Dates: start: 20240418, end: 20240418
  4. ENHERTU [Suspect]
     Active Substance: FAM-TRASTUZUMAB DERUXTECAN-NXKI
     Dosage: 3.2 MG/KG, CYCLIC
     Route: 042
     Dates: start: 20240509, end: 20240509
  5. ENHERTU [Suspect]
     Active Substance: FAM-TRASTUZUMAB DERUXTECAN-NXKI
     Dosage: 3.2 MG/KG, CYCLIC
     Route: 042
     Dates: start: 20240530, end: 20240530
  6. ENHERTU [Suspect]
     Active Substance: FAM-TRASTUZUMAB DERUXTECAN-NXKI
     Dosage: 3.2 MG/KG, CYCLIC
     Route: 042
     Dates: start: 20240711, end: 20240731
  7. UNSPECIFIED INGREDIENT [Concomitant]
     Active Substance: UNSPECIFIED INGREDIENT
     Indication: Antiemetic supportive care
     Dosage: UNK
     Route: 065

REACTIONS (7)
  - Pulmonary toxicity [Unknown]
  - Pulmonary fibrosis [Unknown]
  - Hepatic cytolysis [Unknown]
  - Cholestasis [Unknown]
  - Pneumonia [Unknown]
  - Interstitial lung disease [Unknown]
  - Intentional product use issue [Recovered/Resolved]

NARRATIVE: CASE EVENT DATE: 20240125
